FAERS Safety Report 7110648-1 (Version None)
Quarter: 2010Q4

REPORT INFORMATION
  Report Type: 
  Country: None (occurrence: None)
  Receive Date: 20101118
  Receipt Date: 20101109
  Transmission Date: 20110411
  Serious: Yes (Hospitalization)
  Sender: FDA-Public Use
  Company Number: B0685048A

PATIENT
  Sex: Female

DRUGS (1)
  1. NICODERM [Suspect]
     Dosage: 1PAT PER DAY
     Route: 062
     Dates: start: 20040101, end: 20040101

REACTIONS (1)
  - TOBACCO POISONING [None]
